FAERS Safety Report 6164585 (Version 8)
Quarter: 2014Q1

REPORT INFORMATION
  Report Type: Spontaneous
  Country: US (occurrence: US)
  Receive Date: 20061109
  Receipt Date: 20140203
  Transmission Date: 20141002
  Serious: Yes (Other)
  Sender: FDA-Public Use
  Company Number: US-ROCHE-450690

PATIENT
  Age: 17 Year
  Sex: Male
  Weight: 74.8 kg

DRUGS (3)
  1. ACCUTANE [Suspect]
     Indication: ACNE
     Dosage: ALTERNATING 40 MG DAILY AND 80 MG DAILY.
     Route: 048
     Dates: start: 20001016, end: 20010403
  2. ACCUTANE [Suspect]
     Route: 048
     Dates: start: 20000913, end: 20001016
  3. ACCUTANE [Suspect]
     Route: 048
     Dates: start: 200109, end: 200203

REACTIONS (3)
  - Colitis ulcerative [Unknown]
  - Polyp [Unknown]
  - Irritable bowel syndrome [Unknown]
